FAERS Safety Report 4720727-1 (Version None)
Quarter: 2005Q3

REPORT INFORMATION
  Report Type: 
  Country: None (occurrence: None)
  Receive Date: 20050719
  Receipt Date: 20050708
  Transmission Date: 20060218
  Serious: Yes (Other)
  Sender: FDA-Public Use
  Company Number: 2005098834

PATIENT
  Sex: Female

DRUGS (7)
  1. LIPITOR [Suspect]
     Indication: BLOOD CHOLESTEROL INCREASED
     Dosage: ORAL
     Route: 048
  2. ZOLOFT [Suspect]
     Indication: ANXIETY
     Dosage: ORAL
     Route: 048
  3. ARTHROTEC [Suspect]
     Indication: ARTHRITIS
     Dosage: ORAL
     Route: 048
  4. ALTACE [Concomitant]
  5. K-DUR 10 [Concomitant]
  6. GLUCOVANCE [Concomitant]
  7. NEXIUM [Concomitant]

REACTIONS (4)
  - ASTHENIA [None]
  - CARDIAC FAILURE CONGESTIVE [None]
  - DYSSTASIA [None]
  - EMPHYSEMA [None]
